FAERS Safety Report 4445524-6 (Version None)
Quarter: 2004Q3

REPORT INFORMATION
  Report Type: 
  Country: None (occurrence: None)
  Receive Date: 20040910
  Receipt Date: 20040902
  Transmission Date: 20050211
  Serious: Yes (Hospitalization)
  Sender: FDA-Public Use
  Company Number: FR-JNJFOC-20040900958

PATIENT
  Age: 57 Year
  Sex: Female
  Weight: 54 kg

DRUGS (3)
  1. REMICADE [Suspect]
     Indication: CROHN'S DISEASE
     Route: 042
  2. PURINETHOL [Concomitant]
     Indication: CROHN'S DISEASE
     Route: 049
  3. SOLUPRED [Concomitant]
     Indication: CROHN'S DISEASE
     Route: 049

REACTIONS (1)
  - LYMPHOPENIA [None]
